FAERS Safety Report 11329141 (Version 2)
Quarter: 2015Q3

REPORT INFORMATION
  Report Type: Spontaneous
  Country: FR (occurrence: FR)
  Receive Date: 20150803
  Receipt Date: 20150814
  Transmission Date: 20151125
  Serious: Yes (Life-Threatening)
  Sender: FDA-Public Use
  Company Number: FR-ROCHE-1615844

PATIENT
  Sex: Male

DRUGS (12)
  1. ROFERON-A [Suspect]
     Active Substance: INTERFERON ALFA-2A
     Indication: B-CELL LYMPHOMA
     Route: 058
     Dates: start: 200202, end: 200207
  2. ETOPOSIDE. [Suspect]
     Active Substance: ETOPOSIDE
     Indication: B-CELL LYMPHOMA
     Route: 042
     Dates: start: 200202, end: 200207
  3. VINCRISTINE [Suspect]
     Active Substance: VINCRISTINE
     Indication: B-CELL LYMPHOMA
     Dosage: OVER DAY 1 TO 4
     Route: 042
     Dates: start: 200401, end: 200406
  4. MABTHERA [Suspect]
     Active Substance: RITUXIMAB
     Indication: B-CELL LYMPHOMA
     Dosage: 6 COURSES (1 COURCE: EVERY 35 DAYS)?ON DAY 1
     Route: 042
     Dates: start: 200401, end: 200406
  5. CHLORAMINOPHENE [Suspect]
     Active Substance: CHLORAMBUCIL
     Indication: B-CELL LYMPHOMA
     Dosage: OVER DAY 20 TO DAY 29
     Route: 048
     Dates: start: 200401, end: 200406
  6. DOXORUBICINE [Suspect]
     Active Substance: DOXORUBICIN
     Indication: B-CELL LYMPHOMA
     Dosage: ON DAY 1
     Route: 042
     Dates: start: 200202, end: 200207
  7. PREDNISONE. [Concomitant]
     Active Substance: PREDNISONE
     Dosage: ON DAY 1 TO DAY 5
     Route: 065
     Dates: start: 200202
  8. DEXAMETHASONE. [Concomitant]
     Active Substance: DEXAMETHASONE
     Dosage: OVER DAY 1 TO D, THEN DAY 9 TO DAY 12, THEN DAY 17 TO DAY 20
     Route: 048
     Dates: start: 200401, end: 200406
  9. DOXORUBICINE [Suspect]
     Active Substance: DOXORUBICIN
     Dosage: FROM DAY 1 TO 4
     Route: 042
     Dates: start: 200401, end: 200406
  10. ALKERAN [Suspect]
     Active Substance: MELPHALAN
     Indication: B-CELL LYMPHOMA
     Route: 042
     Dates: start: 200405
  11. ENDOXAN [Suspect]
     Active Substance: CYCLOPHOSPHAMIDE
     Indication: B-CELL LYMPHOMA
     Dosage: ON DAY 1
     Route: 042
     Dates: start: 200202, end: 200207
  12. VIDAZA [Concomitant]
     Active Substance: AZACITIDINE
     Dosage: FROM DAY 1 TO DAY 7 WITH A MINIMUM OF 6 COURSES
     Route: 065
     Dates: start: 20150302

REACTIONS (1)
  - Leukaemia [Not Recovered/Not Resolved]

NARRATIVE: CASE EVENT DATE: 20150225
